FAERS Safety Report 21605524 (Version 1)
Quarter: 2022Q4

REPORT INFORMATION
  Report Type: Spontaneous
  Country: IT (occurrence: IT)
  Receive Date: 20221116
  Receipt Date: 20221116
  Transmission Date: 20230112
  Serious: Yes (Hospitalization)
  Sender: FDA-Public Use
  Company Number: None

PATIENT
  Age: 85 Year
  Sex: Male

DRUGS (3)
  1. VEKLURY [Suspect]
     Active Substance: REMDESIVIR
     Indication: COVID-19 pneumonia
     Dosage: 200 MG
     Route: 042
     Dates: start: 20221101
  2. VEKLURY [Suspect]
     Active Substance: REMDESIVIR
     Dosage: 100 MG
     Route: 042
     Dates: end: 20221103
  3. CEFTRIAXONE [Concomitant]
     Active Substance: CEFTRIAXONE

REACTIONS (1)
  - Transaminases [Recovering/Resolving]

NARRATIVE: CASE EVENT DATE: 20221102
